FAERS Safety Report 9904544 (Version 1)
Quarter: 2014Q1

REPORT INFORMATION
  Report Type: Spontaneous
  Country: US (occurrence: US)
  Receive Date: 20140218
  Receipt Date: 20140218
  Transmission Date: 20141002
  Serious: Yes (Hospitalization)
  Sender: FDA-Public Use
  Company Number: US-SA-2014SA019012

PATIENT
  Age: 3 Month
  Sex: 0

DRUGS (1)
  1. LOVENOX [Suspect]
     Indication: THROMBOSIS
     Route: 065
     Dates: start: 20140207

REACTIONS (3)
  - Haemorrhage [Unknown]
  - Disease progression [Unknown]
  - Overdose [Unknown]
